FAERS Safety Report 8662792 (Version 5)
Quarter: 2014Q4

REPORT INFORMATION
  Report Type: Report from Study
  Country: US (occurrence: US)
  Receive Date: 20120712
  Receipt Date: 20141215
  Transmission Date: 20150529
  Serious: Yes (Death, Hospitalization, Disabling, Other)
  Sender: FDA-Public Use
  Company Number: US-MPIJNJ-2012-04181

PATIENT
  Age: 47 Year
  Sex: Female
  Weight: 86.17 kg

DRUGS (25)
  1. DILAUDID [Concomitant]
     Active Substance: HYDROMORPHONE HYDROCHLORIDE
     Dosage: 4 MG, 1-2 TABLETC EVERY 4-6 HOURS
     Dates: start: 20111228
  2. ZOFRAN                             /00955301/ [Concomitant]
     Active Substance: ONDANSETRON HYDROCHLORIDE
     Indication: NAUSEA
     Dosage: 4 MG, PRN
     Route: 048
     Dates: start: 20120418, end: 20120418
  3. VELCADE [Suspect]
     Active Substance: BORTEZOMIB
     Indication: PLASMA CELL MYELOMA
     Dosage: 2 MG, Q4WEEKS ON DAY 1
     Route: 042
     Dates: start: 20110509, end: 20111205
  4. LYRICA [Concomitant]
     Active Substance: PREGABALIN
     Dosage: 50 MG, UNK
     Route: 048
     Dates: start: 20110711
  5. RELISTOR [Concomitant]
     Active Substance: METHYLNALTREXONE BROMIDE
     Indication: CONSTIPATION
     Dosage: 12 MG, QD
     Route: 058
     Dates: start: 20120410, end: 20120410
  6. DECADRON [Concomitant]
     Active Substance: DEXAMETHASONE
     Indication: SPINAL CORD COMPRESSION
     Dosage: 6 MG, UNK
     Route: 042
     Dates: start: 20120410, end: 20120415
  7. SYNTHROID [Concomitant]
     Active Substance: LEVOTHYROXINE SODIUM
     Indication: HYPOTHYROIDISM
     Dosage: 0.1 MG, QD
     Route: 048
     Dates: start: 20120411, end: 20120423
  8. HUMULIN R [Concomitant]
     Active Substance: INSULIN HUMAN
     Indication: HYPERGLYCAEMIA
     Dosage: 10 UNIT X 1 UNK
     Dates: start: 20120415, end: 20120415
  9. MIDAZOLAM [Concomitant]
     Active Substance: MIDAZOLAM\MIDAZOLAM HYDROCHLORIDE
  10. DOXORUBICIN [Suspect]
     Active Substance: DOXORUBICIN
     Indication: PLASMA CELL MYELOMA
     Dosage: 50 MG, QD (ONCE)
     Route: 042
     Dates: start: 20120418, end: 20120418
  11. PERCOCET [Concomitant]
     Active Substance: ACETAMINOPHEN\OXYCODONE HYDROCHLORIDE
     Dosage: 10-325 MG
     Route: 048
     Dates: start: 20110826
  12. LEVEMIR [Concomitant]
     Active Substance: INSULIN DETEMIR
     Indication: HYPERGLYCAEMIA
     Dosage: 10 UNITS BID
     Route: 058
     Dates: start: 20120415, end: 20120415
  13. LEVEMIR [Concomitant]
     Active Substance: INSULIN DETEMIR
     Dosage: 20 UNIT BID
     Route: 058
     Dates: start: 20120416, end: 20120503
  14. DECADRON [Concomitant]
     Active Substance: DEXAMETHASONE
     Dosage: 4 MG, TID
     Route: 042
     Dates: start: 20120415, end: 20120502
  15. LOVENOX [Concomitant]
     Active Substance: ENOXAPARIN SODIUM
     Indication: THROMBOSIS PROPHYLAXIS
     Dosage: 40 MG, QD
     Route: 058
     Dates: start: 20120410, end: 20120430
  16. NOVOLOG [Concomitant]
     Active Substance: INSULIN ASPART
     Indication: HYPERGLYCAEMIA
     Dosage: 8 UNIT QD
     Dates: start: 20120416, end: 20120416
  17. GABAPENTIN. [Concomitant]
     Active Substance: GABAPENTIN
     Indication: SWELLING
     Dosage: 300 MG, TID
     Route: 048
     Dates: start: 20111024
  18. OXYCODONE AND ACETAMINOPHEN [Concomitant]
     Active Substance: ACETAMINOPHEN\OXYCODONE\OXYCODONE HYDROCHLORIDE
     Dosage: 10-325 MG EVERY 4-6 HRS
     Route: 048
     Dates: start: 20110826
  19. OXYBUTYNIN [Concomitant]
     Active Substance: OXYBUTYNIN
     Indication: ABDOMINAL PAIN UPPER
     Dosage: 5 MG, TID
     Dates: end: 20120409
  20. REVLIMID [Concomitant]
     Active Substance: LENALIDOMIDE
     Dosage: 10 MG, UNK
     Dates: start: 20110620
  21. ZOMETA [Concomitant]
     Active Substance: ZOLEDRONIC ACID
     Dosage: UNK UNK, Q4WEEKS
     Dates: start: 20110523, end: 20111205
  22. DILAUDID [Concomitant]
     Active Substance: HYDROMORPHONE HYDROCHLORIDE
     Dosage: UNK
     Dates: start: 20111220
  23. REVLIMID [Concomitant]
     Active Substance: LENALIDOMIDE
     Dosage: 25 MG, UNK
     Dates: start: 20110519, end: 20111205
  24. FUROSEMIDE. [Concomitant]
     Active Substance: FUROSEMIDE
     Indication: SWELLING
     Dosage: 20 MG, QD
     Route: 048
     Dates: start: 20111010
  25. TEMAZEPAM. [Concomitant]
     Active Substance: TEMAZEPAM
     Dosage: 15 MG, QD
     Route: 048
     Dates: start: 20110523

REACTIONS (8)
  - Spinal cord compression [Not Recovered/Not Resolved]
  - Back pain [Not Recovered/Not Resolved]
  - Paraplegia [Not Recovered/Not Resolved]
  - Oesophagitis [Recovered/Resolved]
  - Nausea [Recovered/Resolved]
  - Plasma cell myeloma [Fatal]
  - Abdominal pain [Recovered/Resolved]
  - Vomiting [Recovered/Resolved]

NARRATIVE: CASE EVENT DATE: 20120409
